FAERS Safety Report 21523895 (Version 8)
Quarter: 2024Q2

REPORT INFORMATION
  Report Type: Spontaneous
  Country: US (occurrence: US)
  Receive Date: 20221029
  Receipt Date: 20240613
  Transmission Date: 20240716
  Serious: No
  Sender: FDA-Public Use
  Company Number: US-UNITED THERAPEUTICS-UNT-2022-025982

PATIENT
  Age: 71 Year
  Sex: Male
  Weight: 75.737 kg

DRUGS (20)
  1. TYVASO DPI [Suspect]
     Active Substance: TREPROSTINIL
     Indication: Pulmonary arterial hypertension
     Dosage: 48 ?G, QID
     Dates: start: 20221026
  2. TREPROSTINIL [Suspect]
     Active Substance: TREPROSTINIL
     Indication: Pulmonary arterial hypertension
     Dosage: UNK
  3. TYVASO [Suspect]
     Active Substance: TREPROSTINIL
     Indication: Pulmonary arterial hypertension
     Dosage: 84 ?G, QID
     Dates: start: 2023, end: 2023
  4. TYVASO [Suspect]
     Active Substance: TREPROSTINIL
     Dosage: 90 ?G, QID
     Dates: start: 2023
  5. TYVASO [Suspect]
     Active Substance: TREPROSTINIL
     Dosage: UNK
  6. OFEV [Suspect]
     Active Substance: NINTEDANIB
     Indication: Idiopathic pulmonary fibrosis
     Dosage: UNK
  7. OFEV [Suspect]
     Active Substance: NINTEDANIB
     Dosage: 100 MG, QD (RESTARTING)
  8. OFEV [Suspect]
     Active Substance: NINTEDANIB
     Dosage: 100 MG, BID
  9. OFEV [Suspect]
     Active Substance: NINTEDANIB
     Dosage: 100 MG, BID
  10. OFEV [Suspect]
     Active Substance: NINTEDANIB
     Dosage: 100 MG, BID
  11. OFEV [Suspect]
     Active Substance: NINTEDANIB
     Dosage: 100 MG, BID
  12. OFEV [Suspect]
     Active Substance: NINTEDANIB
     Dosage: 100 MG, BID
  13. OFEV [Suspect]
     Active Substance: NINTEDANIB
     Dosage: 100 MG, QD
  14. OFEV [Suspect]
     Active Substance: NINTEDANIB
     Dosage: 200 MG, QD
     Dates: start: 20230824, end: 202311
  15. OFEV [Suspect]
     Active Substance: NINTEDANIB
     Dosage: 150 MG, BID
     Dates: start: 202311
  16. SILDENAFIL CITRATE [Concomitant]
     Active Substance: SILDENAFIL CITRATE
     Indication: Product used for unknown indication
     Dosage: UNK
  17. OXYGEN [Concomitant]
     Active Substance: OXYGEN
     Indication: Product used for unknown indication
     Dosage: UNK
  18. PREDNISONE [Concomitant]
     Active Substance: PREDNISONE
     Indication: Product used for unknown indication
     Dosage: UNK
  19. PANTOPRAZOLE SODIUM [Concomitant]
     Active Substance: PANTOPRAZOLE SODIUM
     Indication: Product used for unknown indication
     Dosage: UNK (DELAYED RELEASE)
  20. BUMETANIDE [Concomitant]
     Active Substance: BUMETANIDE
     Indication: Product used for unknown indication
     Dosage: UNK

REACTIONS (3)
  - Hepatic enzyme increased [Recovering/Resolving]
  - Liver disorder [Unknown]
  - Off label use [Unknown]

NARRATIVE: CASE EVENT DATE: 20221026
